FAERS Safety Report 14418640 (Version 1)
Quarter: 2018Q1

REPORT INFORMATION
  Report Type: Spontaneous
  Country: US (occurrence: US)
  Receive Date: 20180122
  Receipt Date: 20180122
  Transmission Date: 20180509
  Serious: Yes (Other)
  Sender: FDA-Public Use
  Company Number: US-TEVA-2018-US-846986

PATIENT
  Sex: Female

DRUGS (1)
  1. CLARAVIS [Suspect]
     Active Substance: ISOTRETINOIN
     Indication: PRODUCT USED FOR UNKNOWN INDICATION
     Route: 065
     Dates: start: 201711

REACTIONS (4)
  - Eczema [Unknown]
  - Dizziness [Not Recovered/Not Resolved]
  - Epistaxis [Unknown]
  - Dry skin [Unknown]

NARRATIVE: CASE EVENT DATE: 201711
